FAERS Safety Report 5515504-8 (Version None)
Quarter: 2007Q4

REPORT INFORMATION
  Report Type: 
  Country: None (occurrence: None)
  Receive Date: 20071113
  Receipt Date: 20070307
  Transmission Date: 20080405
  Serious: No
  Sender: FDA-Public Use
  Company Number: A0642222A

PATIENT
  Sex: Female

DRUGS (3)
  1. COREG [Suspect]
     Dosage: 3.125MG TWICE PER DAY
     Route: 048
     Dates: start: 20061001
  2. FORADIL [Concomitant]
  3. ATROVENT [Concomitant]

REACTIONS (3)
  - BLOOD PRESSURE ORTHOSTATIC DECREASED [None]
  - DYSPNOEA [None]
  - HEART RATE DECREASED [None]
